FAERS Safety Report 7746374-5 (Version None)
Quarter: 2011Q3

REPORT INFORMATION
  Report Type: 
  Country: None (occurrence: None)
  Receive Date: 20110913
  Receipt Date: 20101109
  Transmission Date: 20111222
  Serious: Yes (Hospitalization, Other)
  Sender: FDA-Public Use
  Company Number: KR-UCBSA-020642

PATIENT
  Sex: Female
  Weight: 65 kg

DRUGS (19)
  1. REBAMIPIDE [Concomitant]
     Indication: PROPHYLAXIS
     Route: 048
     Dates: start: 19991230
  2. RIFAMPICIN [Concomitant]
     Indication: TUBERCULOSIS
     Route: 048
     Dates: start: 20101029
  3. ISONIAZID [Concomitant]
     Indication: TUBERCULOSIS
     Route: 048
     Dates: start: 20101029
  4. ETHAMBUTOL HYDROCHLORIDE [Concomitant]
     Indication: TUBERCULOSIS
     Route: 048
     Dates: start: 20101029
  5. FEXOFENADINE [Concomitant]
     Indication: NASOPHARYNGITIS
     Route: 048
     Dates: start: 20101015, end: 20101019
  6. CERTOLIZUMAB PEGOL [Suspect]
     Indication: RHEUMATOID ARTHRITIS
     Dosage: NBR OF DOSES: 3
     Route: 058
     Dates: start: 20100603
  7. PYRIDOXINE HCL [Concomitant]
     Indication: PROPHYLAXIS
     Route: 048
     Dates: start: 20101029
  8. METHOTREXATE [Concomitant]
     Indication: RHEUMATOID ARTHRITIS
     Route: 048
     Dates: start: 20100407, end: 20101024
  9. ADCAL [Concomitant]
     Indication: OSTEOPOROSIS
     Dosage: 1TAB BID
     Route: 048
     Dates: start: 20041025
  10. PYRAZINAMIDE [Concomitant]
     Indication: TUBERCULOSIS
     Route: 048
     Dates: start: 20101029
  11. METHYLPREDNISOLONE [Concomitant]
     Indication: RHEUMATOID ARTHRITIS
     Route: 048
     Dates: start: 20100222, end: 20101025
  12. METHYLPREDNISOLONE [Concomitant]
     Route: 048
     Dates: start: 20101027, end: 20101030
  13. ACETAMINOPHEN [Concomitant]
     Indication: NASOPHARYNGITIS
     Route: 048
     Dates: start: 20101015, end: 20101019
  14. METHYLPREDNISOLONE [Concomitant]
     Route: 048
     Dates: start: 20101026, end: 20101026
  15. FOLIC ACID [Concomitant]
     Indication: PROPHYLAXIS
     Route: 048
     Dates: start: 19991218
  16. CERTOLIZUMAB PEGOL [Suspect]
     Route: 058
     Dates: end: 20101008
  17. METHYLPREDNISOLONE [Concomitant]
     Route: 048
     Dates: start: 20101101
  18. METHYLPREDNISOLONE [Concomitant]
     Route: 048
     Dates: start: 20101031, end: 20101031
  19. ACECLOFENAC [Concomitant]
     Indication: PAIN
     Route: 048
     Dates: start: 20100222

REACTIONS (2)
  - TUBERCULOSIS [None]
  - MENINGITIS ASEPTIC [None]
